FAERS Safety Report 24214862 (Version 2)
Quarter: 2024Q3

REPORT INFORMATION
  Report Type: Report from Study
  Country: FR (occurrence: FR)
  Receive Date: 20240815
  Receipt Date: 20240903
  Transmission Date: 20241017
  Serious: Yes (Life-Threatening, Other)
  Sender: TEVA
  Company Number: FR-TEVA-VS-3232031

PATIENT
  Age: 40 Year
  Sex: Male

DRUGS (2)
  1. DIAZEPAM [Suspect]
     Active Substance: DIAZEPAM
     Indication: Overdose
     Route: 048
  2. METHADONE [Suspect]
     Active Substance: METHADONE HYDROCHLORIDE
     Indication: Overdose
     Route: 048

REACTIONS (17)
  - Pneumonia aspiration [Unknown]
  - Acute kidney injury [Unknown]
  - Confusional state [Unknown]
  - Drug abuse [Unknown]
  - Monoplegia [Unknown]
  - Acute hepatic failure [Unknown]
  - Motor dysfunction [Unknown]
  - Drug dependence [Unknown]
  - Toxicity to various agents [Unknown]
  - Overdose [Unknown]
  - Encephalopathy [Unknown]
  - Circulatory collapse [Unknown]
  - Aphasia [Unknown]
  - Executive dysfunction [Unknown]
  - Anterograde amnesia [Unknown]
  - Sensory loss [Unknown]
  - Pyramidal tract syndrome [Unknown]
